FAERS Safety Report 21553074 (Version 1)
Quarter: 2022Q4

REPORT INFORMATION
  Report Type: Spontaneous
  Country: JP (occurrence: JP)
  Receive Date: 20221104
  Receipt Date: 20221104
  Transmission Date: 20230113
  Serious: Yes (Other)
  Sender: FDA-Public Use
  Company Number: JP-TAKEDA-2022TJP054149

PATIENT
  Age: 7 Decade
  Sex: Female

DRUGS (2)
  1. ALUNBRIG [Suspect]
     Active Substance: BRIGATINIB
     Indication: Non-small cell lung cancer
     Dosage: UNK
     Route: 048
     Dates: start: 20220408
  2. ALUNBRIG [Suspect]
     Active Substance: BRIGATINIB
     Dosage: 120 MILLIGRAM
     Route: 048
     Dates: end: 20220909

REACTIONS (6)
  - Non-small cell lung cancer [Unknown]
  - Back pain [Recovered/Resolved]
  - Blood creatine phosphokinase increased [Recovering/Resolving]
  - Rash pruritic [Recovered/Resolved]
  - Weight decreased [Unknown]
  - Diarrhoea [Recovering/Resolving]

NARRATIVE: CASE EVENT DATE: 20220408
